FAERS Safety Report 18909327 (Version 1)
Quarter: 2021Q1

REPORT INFORMATION
  Report Type: Spontaneous
  Country: US (occurrence: US)
  Receive Date: 20210218
  Receipt Date: 20210218
  Transmission Date: 20210420
  Serious: Yes (Other)
  Sender: FDA-Public Use
  Company Number: None

PATIENT
  Age: 48 Year
  Sex: Female
  Weight: 65.25 kg

DRUGS (2)
  1. VITAMIN D SUPPLEMENT [Concomitant]
     Active Substance: VITAMIN D NOS
  2. NITROFURANTOIN MONOHYDRATE MACROCRYSTALS [Suspect]
     Active Substance: NITROFURANTOIN\NITROFURANTOIN MONOHYDRATE
     Indication: URINARY TRACT INFECTION
     Dosage: ?          QUANTITY:1 CAPSULE(S);?
     Route: 048
     Dates: start: 20200818, end: 20200823

REACTIONS (7)
  - Neuropathy peripheral [None]
  - Sensory disturbance [None]
  - Loss of personal independence in daily activities [None]
  - Nervous system disorder [None]
  - Paraesthesia [None]
  - Hypoaesthesia [None]
  - Panic disorder [None]

NARRATIVE: CASE EVENT DATE: 20200920
